FAERS Safety Report 4871314-6 (Version None)
Quarter: 2005Q4

REPORT INFORMATION
  Report Type: 
  Country: None (occurrence: None)
  Receive Date: 20051229
  Receipt Date: 20051220
  Transmission Date: 20060501
  Serious: Yes (Hospitalization)
  Sender: FDA-Public Use
  Company Number: TPA2005A01316

PATIENT
  Age: 56 Year
  Sex: Female
  Weight: 127.6 kg

DRUGS (14)
  1. PIOGLITAZONE HCL [Suspect]
     Indication: GLUCOSE TOLERANCE IMPAIRED
     Dosage: PER ORAL
     Route: 048
     Dates: start: 20040621, end: 20051009
  2. SYNTHROID [Concomitant]
  3. VERAPAMIL ER (VERAPAMIL) [Concomitant]
  4. CELEBREX [Concomitant]
  5. TRAMADOL HCL [Concomitant]
  6. DULOXETINE HCL OR PLACEBO (DULOXETINE HYDROCHLORIDE) (CAPSULES) [Concomitant]
  7. LUTEIN + BRILLEBERRY COMPLEX (HERBAL PREPARTION) [Concomitant]
  8. CALCIUM WITH D (CALCIUM WITH VITAMIN D) [Concomitant]
  9. JUICE PLUS GARDEN BLEND (ALL OTHER NON-THERAPEUTIC PRODUCTS) (TABLETS) [Concomitant]
  10. JUICE PLUS ORCHARD BLEND (ALL OTHER NON-THERAPEUTIC PRODUCTS) (TABLETS [Concomitant]
  11. AMBIEN [Concomitant]
  12. OS-CAL (OS-CAL) [Concomitant]
  13. ECOTRIN ASPIRIN (ACETYLSALICYLIC ACID) [Concomitant]
  14. ULTRAM [Concomitant]

REACTIONS (18)
  - ABDOMINAL DISCOMFORT [None]
  - ASTHENIA [None]
  - DUODENAL ULCER [None]
  - DYSPNOEA EXERTIONAL [None]
  - ELECTROCARDIOGRAM ABNORMAL [None]
  - ELECTROCARDIOGRAM QT PROLONGED [None]
  - ELECTROCARDIOGRAM T WAVE ABNORMAL [None]
  - FAECES DISCOLOURED [None]
  - FATIGUE [None]
  - GASTRITIS [None]
  - HAEMATOCRIT DECREASED [None]
  - HAEMOGLOBIN DECREASED [None]
  - HELICOBACTER INFECTION [None]
  - LUNG DISORDER [None]
  - NAUSEA [None]
  - OCCULT BLOOD POSITIVE [None]
  - PALPITATIONS [None]
  - VENTRICULAR EXTRASYSTOLES [None]
